FAERS Safety Report 8919424 (Version 1)
Quarter: 2012Q4

REPORT INFORMATION
  Report Type: 
  Country: US (occurrence: US)
  Receive Date: 20121121
  Receipt Date: 20121121
  Transmission Date: 20130627
  Serious: No
  Sender: FDA-Public Use
  Company Number: US-PFIZER INC-2012288609

PATIENT
  Age: 59 Year
  Sex: Female

DRUGS (3)
  1. ZOLOFT [Suspect]
     Dosage: 125 mg (1 tablet of 25 mg strength with 1 tablet 100 mg tab), 1x/day
     Route: 048
     Dates: start: 20120305
  2. CRESTOR [Concomitant]
     Dosage: 10 mg (1 tablet of 10 mg tablet), 1x/day
     Route: 048
     Dates: start: 20120305
  3. DIOVAN HCT [Concomitant]
     Dosage: 1 tablet of 160-12.5 mg tablet, 1x/day
     Route: 048
     Dates: start: 20120320

REACTIONS (1)
  - Rosacea [Unknown]
